FAERS Safety Report 5217868-1 (Version None)
Quarter: 2007Q1

REPORT INFORMATION
  Report Type: 
  Country: None (occurrence: None)
  Receive Date: 20070124
  Receipt Date: 20070110
  Transmission Date: 20070707
  Serious: Yes (Hospitalization)
  Sender: FDA-Public Use
  Company Number: US-SHR-US-2006-008767

PATIENT
  Age: 49 Year
  Sex: Female

DRUGS (18)
  1. BETASERON [Suspect]
     Indication: RELAPSING-REMITTING MULTIPLE SCLEROSIS
     Dosage: 8 MIU, EVERY 2D
     Route: 058
     Dates: start: 20041101, end: 20060405
  2. BETASERON [Suspect]
     Dosage: 8 MIU, EVERY 2D
     Route: 058
     Dates: start: 20060415
  3. METHADONE [Concomitant]
     Indication: PAIN
     Dosage: .1 MG, 4X/DAY
     Dates: start: 20040101
  4. VALIUM [Concomitant]
     Indication: DEPRESSION
     Dosage: 15 MG, 4X/DAY (VARIES)
     Dates: start: 20000101
  5. MIRALAX [Suspect]
     Indication: CONSTIPATION
  6. BACLOFEN [Concomitant]
     Indication: RELAPSING-REMITTING MULTIPLE SCLEROSIS
     Dosage: 120 MG/D, UNK
     Dates: start: 20020101
  7. SYNTHROID [Concomitant]
     Indication: HYPOTHYROIDISM
     Dosage: .5 MG, 1X/DAY
     Dates: start: 19840101
  8. CYMBALTA [Concomitant]
     Indication: DEPRESSION
     Dates: start: 20060101
  9. VITAMIN B-12 [Concomitant]
     Dosage: DAILY
  10. CALCIUM W/MAGNESIUM [Concomitant]
     Dosage: DAILY
  11. VITAMIN D [Concomitant]
     Dosage: DAILY
  12. VITAMIN E [Concomitant]
  13. FOLIC ACID [Concomitant]
     Dosage: DAILY
  14. BLACK COHOSH [Concomitant]
  15. DIUREX [Concomitant]
     Dosage: UNK, AS REQ'D
  16. STOOL SOFTENER [Concomitant]
     Dosage: UNK, 4X/DAY
  17. LAXATIVES [Concomitant]
     Dosage: DAILY
  18. TYLENOL [Concomitant]
     Indication: PREMEDICATION
     Dosage: UNK, BED T.

REACTIONS (7)
  - ASPIRATION [None]
  - CHOKING [None]
  - INFLUENZA LIKE ILLNESS [None]
  - LOSS OF CONSCIOUSNESS [None]
  - NECK PAIN [None]
  - RASH [None]
  - VOMITING [None]
